FAERS Safety Report 18637579 (Version 1)
Quarter: 2020Q4

REPORT INFORMATION
  Report Type: Spontaneous
  Country: TR (occurrence: TR)
  Receive Date: 20201218
  Receipt Date: 20201218
  Transmission Date: 20210114
  Serious: Yes (Life-Threatening, Other)
  Sender: FDA-Public Use
  Company Number: TR-SA-2020SA357748

PATIENT

DRUGS (4)
  1. LANSOPRAZOLE. [Suspect]
     Active Substance: LANSOPRAZOLE
     Dosage: UNK
     Route: 065
  2. DEXKETOPROFEN TROMETAMOL [Suspect]
     Active Substance: DEXKETOPROFEN TROMETAMOL
     Dosage: UNK
     Route: 065
  3. RANITIDINE. [Suspect]
     Active Substance: RANITIDINE
  4. PENICILLIN [PENICILLIN NOS] [Suspect]
     Active Substance: PENICILLIN
     Dosage: UNK
     Route: 065

REACTIONS (8)
  - Electrocardiogram ST segment depression [Unknown]
  - Kounis syndrome [Unknown]
  - Troponin I increased [Unknown]
  - Syncope [Unknown]
  - Chest pain [Unknown]
  - Acute coronary syndrome [Unknown]
  - Drug hypersensitivity [Unknown]
  - Dyspnoea [Unknown]
